FAERS Safety Report 17314007 (Version 1)
Quarter: 2020Q1

REPORT INFORMATION
  Report Type: Spontaneous
  Country: US (occurrence: US)
  Receive Date: 20200123
  Receipt Date: 20200123
  Transmission Date: 20200409
  Serious: Yes (Hospitalization)
  Sender: FDA-Public Use
  Company Number: None

PATIENT
  Age: 57 Year
  Sex: Female

DRUGS (8)
  1. SOD CHLORIDE [Concomitant]
     Dates: start: 20200105
  2. ROSUVASTATIN. [Concomitant]
     Active Substance: ROSUVASTATIN
     Dates: start: 20190916
  3. FOLIC ACID. [Concomitant]
     Active Substance: FOLIC ACID
     Dates: start: 20190918
  4. METHOTREXATE. [Concomitant]
     Active Substance: METHOTREXATE
     Dates: start: 20200120
  5. HUMIRA [Suspect]
     Active Substance: ADALIMUMAB
     Indication: COMBINED IMMUNODEFICIENCY
     Dosage: ?          OTHER FREQUENCY:EVERY TWO WEEKS;?
     Route: 058
     Dates: start: 20180810
  6. EZETIMIBE. [Concomitant]
     Active Substance: EZETIMIBE
     Dates: start: 20190903
  7. LEVITHYROXIN [Concomitant]
     Dates: start: 20191010
  8. ESTRADIOL. [Concomitant]
     Active Substance: ESTRADIOL
     Dates: start: 20191022

REACTIONS (1)
  - Therapy cessation [None]

NARRATIVE: CASE EVENT DATE: 20191205
